FAERS Safety Report 18738424 (Version 1)
Quarter: 2021Q1

REPORT INFORMATION
  Report Type: Spontaneous
  Country: CN (occurrence: CN)
  Receive Date: 20210114
  Receipt Date: 20210114
  Transmission Date: 20210419
  Serious: Yes (Other)
  Sender: FDA-Public Use
  Company Number: CN-ASTRAZENECA-2020SE63542

PATIENT
  Age: 87 Year
  Sex: Female
  Weight: 70 kg

DRUGS (1)
  1. IRESSA [Suspect]
     Active Substance: GEFITINIB
     Indication: NON-SMALL CELL LUNG CANCER
     Route: 048
     Dates: start: 201707

REACTIONS (6)
  - Impaired healing [Recovered/Resolved]
  - Pruritus [Recovering/Resolving]
  - Alopecia [Recovered/Resolved]
  - Rash [Recovered/Resolved]
  - Drug resistance [Unknown]
  - Acquired gene mutation [Not Recovered/Not Resolved]
